FAERS Safety Report 25952092 (Version 1)
Quarter: 2025Q4

REPORT INFORMATION
  Report Type: Spontaneous
  Country: EU (occurrence: EU)
  Receive Date: 20251023
  Receipt Date: 20251023
  Transmission Date: 20260117
  Serious: Yes (Hospitalization)
  Sender: TEVA
  Company Number: None

PATIENT
  Age: 66 Year
  Sex: Female
  Weight: 54.4 kg

DRUGS (4)
  1. PACLITAXEL [Suspect]
     Active Substance: PACLITAXEL
     Indication: Metastases to central nervous system
     Dosage: ONE TIME, 100 ML/HOUR ADMINISTERED FOR 180 MIN, INFUUS / BRAND NAME NOT SPECIFIED
     Route: 065
     Dates: start: 20250801, end: 20250923
  2. CARBOPLATIN [Concomitant]
     Active Substance: CARBOPLATIN
     Indication: Product used for unknown indication
     Dosage: DOSAGE: 10 MG/ML INFOPL CONC / BRAND NAME NOT SPECIFIED
     Route: 065
  3. ATEZOLIZUMAB [Concomitant]
     Active Substance: ATEZOLIZUMAB
     Indication: Product used for unknown indication
     Dosage: DOSAGE: 60 MG/ML INFOPL CONC / BRAND NAME NOT SPECIFIED
     Route: 065
  4. BEVACIZUMAB [Concomitant]
     Active Substance: BEVACIZUMAB
     Indication: Product used for unknown indication
     Dosage: DOSAGE: 25 MG/ML INFOPL CONC  / BRAND NAME NOT SPECIFIED
     Route: 065

REACTIONS (3)
  - Polyneuropathy [Recovering/Resolving]
  - Asthenia [Recovering/Resolving]
  - Gait disturbance [Recovering/Resolving]
